FAERS Safety Report 12104378 (Version 2)
Quarter: 2016Q2

REPORT INFORMATION
  Report Type: Spontaneous
  Country: US (occurrence: US)
  Receive Date: 20160223
  Receipt Date: 20160516
  Transmission Date: 20160815
  Serious: No
  Sender: FDA-Public Use
  Company Number: US-009507513-1602USA010000

PATIENT
  Age: 73 Year
  Sex: Male
  Weight: 274.97 kg

DRUGS (6)
  1. BELSOMRA [Suspect]
     Active Substance: SUVOREXANT
     Indication: INSOMNIA
     Dosage: 20 MG, DAILY
     Route: 048
     Dates: start: 20160218, end: 2016
  2. PROVENTIL [Concomitant]
     Active Substance: ALBUTEROL
     Indication: WHEEZING
     Dosage: UNK, PRN
  3. ASPIRIN. [Concomitant]
     Active Substance: ASPIRIN
     Dosage: UNK, DAILY
  4. VICODIN [Concomitant]
     Active Substance: ACETAMINOPHEN\HYDROCODONE BITARTRATE
     Dosage: UNK
  5. ADVAIR HFA [Concomitant]
     Active Substance: FLUTICASONE PROPIONATE\SALMETEROL XINAFOATE
     Indication: ASTHMA
     Dosage: UNK, DAILY
  6. OXYGEN. [Concomitant]
     Active Substance: OXYGEN
     Indication: SLEEP APNOEA SYNDROME
     Dosage: 2 L, AT NIGHT
     Dates: start: 201512

REACTIONS (3)
  - Disorientation [Recovered/Resolved]
  - Somnolence [Recovered/Resolved]
  - Poor quality sleep [Recovered/Resolved]

NARRATIVE: CASE EVENT DATE: 20160219
